FAERS Safety Report 4989410-1 (Version None)
Quarter: 2006Q2

REPORT INFORMATION
  Report Type: 
  Country: None (occurrence: None)
  Receive Date: 20060425
  Receipt Date: 20060413
  Transmission Date: 20061013
  Serious: Yes (Other)
  Sender: FDA-Public Use
  Company Number: 2006051356

PATIENT
  Age: 57 Year
  Sex: Female
  Weight: 90.7194 kg

DRUGS (15)
  1. TIKOSYN [Suspect]
     Indication: ARRHYTHMIA
     Dosage: 500 MCG (250 MCG, 2 IN 1 D), ORAL
     Route: 048
     Dates: start: 20040101
  2. AVELOX [Suspect]
     Indication: PNEUMONIA
     Dates: start: 20040101, end: 20060101
  3. ALLOPURINOL [Concomitant]
  4. NEORAL [Concomitant]
  5. NEXIUM [Concomitant]
  6. LASIX [Concomitant]
  7. POTASSIUM             (POTASSIUM) [Concomitant]
  8. PREDNISONE TAB [Concomitant]
  9. COUMADIN [Concomitant]
  10. ZESTRIL [Concomitant]
  11. ATENOLOL [Concomitant]
  12. MULTIVITAMIN [Concomitant]
  13. VITAMIN B          (VITAMIN B) [Concomitant]
  14. CALCIUM W/MAGNESIUM                 (CALCIUM, MAGNESIUM) [Concomitant]
  15. IRON          (IRON) [Concomitant]

REACTIONS (3)
  - CARDIAC PACEMAKER MALFUNCTION [None]
  - DRUG INTERACTION [None]
  - PNEUMONIA [None]
